FAERS Safety Report 23237657 (Version 2)
Quarter: 2023Q4

REPORT INFORMATION
  Report Type: Spontaneous
  Country: FR (occurrence: FR)
  Receive Date: 20231128
  Receipt Date: 20231218
  Transmission Date: 20240110
  Serious: Yes (Disabling)
  Sender: FDA-Public Use
  Company Number: None

PATIENT
  Age: 15 Year
  Sex: Male
  Weight: 73 kg

DRUGS (8)
  1. SIMPONI [Suspect]
     Active Substance: GOLIMUMAB
     Indication: Juvenile idiopathic arthritis
     Route: 058
     Dates: start: 20220908, end: 20231106
  2. SIMPONI [Suspect]
     Active Substance: GOLIMUMAB
  3. SIMPONI [Suspect]
     Active Substance: GOLIMUMAB
  4. NAPROXEN [Concomitant]
     Active Substance: NAPROXEN
  5. ESOMEPRAZOLE MAGNESIUM [Concomitant]
     Active Substance: ESOMEPRAZOLE MAGNESIUM
  6. DOLIPRANE [Concomitant]
     Active Substance: ACETAMINOPHEN
  7. LIDOCAINE [Concomitant]
     Active Substance: LIDOCAINE
  8. BACLOFEN [Concomitant]
     Active Substance: BACLOFEN

REACTIONS (2)
  - Demyelination [Not Recovered/Not Resolved]
  - Sensorimotor disorder [Recovered/Resolved]

NARRATIVE: CASE EVENT DATE: 20231106
